FAERS Safety Report 6522951-4 (Version None)
Quarter: 2009Q4

REPORT INFORMATION
  Report Type: 
  Country: None (occurrence: None)
  Receive Date: 20091222
  Receipt Date: 20091215
  Transmission Date: 20100525
  Serious: Yes (Hospitalization, Other)
  Sender: FDA-Public Use
  Company Number: 230050M09FRA

PATIENT
  Age: 65 Year
  Sex: Male
  Weight: 84 kg

DRUGS (3)
  1. REBIF [Suspect]
     Indication: RELAPSING-REMITTING MULTIPLE SCLEROSIS
     Dosage: 3 IN 1 WEEKS, SUBCUTANEOUS
     Route: 058
     Dates: start: 20080601, end: 20090923
  2. LIOREZAL (BACLOFEN) [Concomitant]
  3. ATORVASTATIN CALCIUM [Concomitant]

REACTIONS (4)
  - AZOTAEMIA [None]
  - HYPERTENSION [None]
  - NEPHROTIC SYNDROME [None]
  - THROMBOTIC MICROANGIOPATHY [None]
